FAERS Safety Report 8112820-0 (Version None)
Quarter: 2012Q1

REPORT INFORMATION
  Report Type: 
  Country: None (occurrence: None)
  Receive Date: 20120203
  Receipt Date: 20120123
  Transmission Date: 20120608
  Serious: Yes (Other)
  Sender: FDA-Public Use
  Company Number: US-JNJFOC-20120110342

PATIENT
  Sex: Female
  Weight: 74.84 kg

DRUGS (7)
  1. REMICADE [Suspect]
     Indication: RHEUMATOID ARTHRITIS
     Dosage: INITIATED 2 OR 3 YEARS AGO
     Route: 042
  2. CRESTOR [Concomitant]
     Indication: BLOOD CHOLESTEROL INCREASED
  3. TRAZODONE HCL [Concomitant]
     Indication: INSOMNIA
     Route: 048
  4. METHOTREXATE [Concomitant]
     Indication: RHEUMATOID ARTHRITIS
     Route: 030
  5. SYNTHROID [Concomitant]
     Indication: THYROID DISORDER
     Dates: start: 20010101
  6. FOLIC ACID [Concomitant]
     Indication: RHEUMATOID ARTHRITIS
     Route: 048
  7. VITAMIN B-12 [Concomitant]
     Indication: VITAMIN B12 DEFICIENCY

REACTIONS (5)
  - UTERINE CANCER [None]
  - AMENORRHOEA [None]
  - FATIGUE [None]
  - INFLUENZA LIKE ILLNESS [None]
  - BACK PAIN [None]
